FAERS Safety Report 8881067 (Version 3)
Quarter: 2014Q1

REPORT INFORMATION
  Report Type: Report from Study
  Country: CA (occurrence: CA)
  Receive Date: 20121101
  Receipt Date: 20140210
  Transmission Date: 20141002
  Serious: Yes (Death)
  Sender: FDA-Public Use
  Company Number: CA-PFIZER INC-2012266525

PATIENT
  Age: 52 Year
  Sex: Male

DRUGS (3)
  1. PREGABALIN [Suspect]
     Indication: CONVULSION
     Dosage: 300 MG, 2X/DAY
     Route: 048
  2. EPIVAL [Concomitant]
     Indication: EPILEPSY
     Dosage: 2500 MG DAILY (750MG/500MG/500MG/750MG)
     Route: 048
  3. TEGRETOL [Concomitant]
     Dosage: 400 MG, 4X/DAY

REACTIONS (2)
  - Acute myocardial infarction [Fatal]
  - Cardiac arrest [Fatal]
